FAERS Safety Report 17000094 (Version 1)
Quarter: 2019Q4

REPORT INFORMATION
  Report Type: Spontaneous
  Country: AU (occurrence: AU)
  Receive Date: 20191106
  Receipt Date: 20191106
  Transmission Date: 20200122
  Serious: Yes (Other)
  Sender: FDA-Public Use
  Company Number: NVSC2019AU022937

PATIENT
  Sex: Female

DRUGS (1)
  1. GILENYA [Suspect]
     Active Substance: FINGOLIMOD HYDROCHLORIDE
     Indication: PRODUCT USED FOR UNKNOWN INDICATION
     Dosage: UNK
     Route: 065

REACTIONS (8)
  - Respiratory tract infection [Unknown]
  - Gait disturbance [Unknown]
  - Prescribed underdose [Unknown]
  - Coordination abnormal [Unknown]
  - JC virus infection [Unknown]
  - JC virus CSF test positive [Unknown]
  - Muscular weakness [Unknown]
  - Urinary tract infection [Unknown]
